FAERS Safety Report 4570016-3 (Version None)
Quarter: 2005Q1

REPORT INFORMATION
  Report Type: 
  Country: None (occurrence: None)
  Receive Date: 20050204
  Receipt Date: 20050128
  Transmission Date: 20050727
  Serious: Yes (Death, Hospitalization, Other)
  Sender: FDA-Public Use
  Company Number: US-BRISTOL-MYERS SQUIBB COMPANY-12841797

PATIENT
  Age: 81 Year
  Sex: Female
  Weight: 68 kg

DRUGS (1)
  1. COUMADIN [Suspect]
     Indication: HEART RATE IRREGULAR
     Route: 048
     Dates: start: 20040725, end: 20040101

REACTIONS (10)
  - BRAIN DEATH [None]
  - CEREBRAL HAEMORRHAGE [None]
  - COMA [None]
  - CONVULSION [None]
  - DEATH [None]
  - HAEMORRHAGE [None]
  - HAEMORRHAGE SUBCUTANEOUS [None]
  - INTERNATIONAL NORMALISED RATIO INCREASED [None]
  - PROTHROMBIN TIME PROLONGED [None]
  - RECTAL HAEMORRHAGE [None]
